FAERS Safety Report 16908383 (Version 1)
Quarter: 2019Q4

REPORT INFORMATION
  Report Type: Spontaneous
  Country: US (occurrence: US)
  Receive Date: 20191011
  Receipt Date: 20191011
  Transmission Date: 20200122
  Serious: Yes (Other)
  Sender: FDA-Public Use
  Company Number: US-PFIZER INC-2019437970

PATIENT
  Age: 67 Year

DRUGS (1)
  1. LYRICA [Suspect]
     Active Substance: PREGABALIN
     Indication: POST HERPETIC NEURALGIA
     Dosage: UNK

REACTIONS (4)
  - Asthma [Unknown]
  - Systemic lupus erythematosus [Unknown]
  - Pulmonary fibrosis [Unknown]
  - Intervertebral disc degeneration [Unknown]
